FAERS Safety Report 7650975-2 (Version None)
Quarter: 2011Q3

REPORT INFORMATION
  Report Type: 
  Country: None (occurrence: None)
  Receive Date: 20110802
  Receipt Date: 20110726
  Transmission Date: 20111222
  Serious: Yes (Death, Other)
  Sender: FDA-Public Use
  Company Number: US-BAYER-201041856NA

PATIENT
  Age: 77 Year
  Sex: Male
  Weight: 96 kg

DRUGS (9)
  1. ZAROXOLYN [Concomitant]
     Dosage: 10 MG, BID NASOGASTRIC
  2. FUROSEMIDE [Concomitant]
     Dosage: 20 MG, QD
  3. NAPROXEN (ALEVE) [Concomitant]
  4. EXTRA STRENGTH TYLENOL [Concomitant]
  5. TRASYLOL [Suspect]
     Indication: CORONARY ARTERY BYPASS
     Route: 042
     Dates: start: 20041004
  6. LIPITOR [Concomitant]
     Dosage: 40 MG, QD
  7. LISINOPRIL [Concomitant]
     Dosage: 20 MG, QD
  8. FUROSEMIDE [Concomitant]
     Dosage: 120 MG, UNK
     Route: 042
     Dates: start: 20041013
  9. TRASYLOL [Suspect]
     Indication: AORTIC VALVE REPLACEMENT

REACTIONS (11)
  - RENAL FAILURE [None]
  - STRESS [None]
  - DEATH [None]
  - ANXIETY [None]
  - FEAR [None]
  - MULTI-ORGAN FAILURE [None]
  - RENAL IMPAIRMENT [None]
  - UNEVALUABLE EVENT [None]
  - RENAL INJURY [None]
  - EMOTIONAL DISTRESS [None]
  - PAIN [None]
